FAERS Safety Report 13365885 (Version 1)
Quarter: 2017Q1

REPORT INFORMATION
  Report Type: Spontaneous
  Country: CN (occurrence: CN)
  Receive Date: 20170323
  Receipt Date: 20170323
  Transmission Date: 20170429
  Serious: Yes (Hospitalization)
  Sender: FDA-Public Use
  Company Number: CN-JNJFOC-20170322471

PATIENT
  Age: 62 Year
  Sex: Male
  Weight: 70 kg

DRUGS (3)
  1. CARBAMAZEPINE. [Suspect]
     Active Substance: CARBAMAZEPINE
     Indication: EPILEPSY
     Route: 048
     Dates: start: 20160801, end: 20160914
  2. TOPAMAX [Suspect]
     Active Substance: TOPIRAMATE
     Indication: EPILEPSY
     Route: 048
     Dates: start: 20160908, end: 20160914
  3. SODIUM VALPROATE [Concomitant]
     Active Substance: VALPROATE SODIUM
     Indication: EPILEPSY
     Route: 065

REACTIONS (3)
  - Drug eruption [Recovering/Resolving]
  - Pruritus [Recovering/Resolving]
  - Rash maculo-papular [Recovering/Resolving]

NARRATIVE: CASE EVENT DATE: 20160914
